FAERS Safety Report 16810688 (Version 2)
Quarter: 2019Q4

REPORT INFORMATION
  Report Type: Report from Study
  Country: US (occurrence: US)
  Receive Date: 20190916
  Receipt Date: 20191029
  Transmission Date: 20200122
  Serious: Yes (Hospitalization, Other)
  Sender: FDA-Public Use
  Company Number: US-JNJFOC-20190901237

PATIENT
  Age: 89 Year
  Sex: Male

DRUGS (2)
  1. IMBRUVICA [Suspect]
     Active Substance: IBRUTINIB
     Dosage: 420 MG, QD
     Route: 048
     Dates: start: 20190718, end: 20190824
  2. IMBRUVICA [Suspect]
     Active Substance: IBRUTINIB
     Indication: CHRONIC LYMPHOCYTIC LEUKAEMIA
     Dosage: 420 MG, QD
     Route: 048
     Dates: start: 20190713

REACTIONS (5)
  - Bronchitis [Unknown]
  - Post procedural haemorrhage [Unknown]
  - Haemoglobin decreased [Not Recovered/Not Resolved]
  - Pneumonia [Unknown]
  - Prostatic disorder [Unknown]

NARRATIVE: CASE EVENT DATE: 201908
